FAERS Safety Report 4295334-8 (Version None)
Quarter: 2004Q1

REPORT INFORMATION
  Report Type: 
  Country: None (occurrence: None)
  Receive Date: 20040216
  Receipt Date: 20030612
  Transmission Date: 20041129
  Serious: No
  Sender: FDA-Public Use
  Company Number: US-GLAXOSMITHKLINE-A0412473A

PATIENT
  Age: 32 Year
  Sex: Female

DRUGS (3)
  1. LAMICTAL [Suspect]
     Indication: DEPRESSION
     Dosage: 50MG PER DAY
     Route: 048
     Dates: start: 20030318, end: 20030520
  2. ZOLOFT [Concomitant]
     Indication: FLIGHT OF IDEAS
     Route: 048
  3. BUSPAR [Concomitant]
     Dosage: 15MG TWICE PER DAY
     Route: 048

REACTIONS (1)
  - INSOMNIA [None]
